FAERS Safety Report 6064086-3 (Version None)
Quarter: 2009Q1

REPORT INFORMATION
  Report Type: 
  Country: None (occurrence: None)
  Receive Date: 20090204
  Receipt Date: 20090123
  Transmission Date: 20090719
  Serious: Yes (Life-Threatening, Hospitalization)
  Sender: FDA-Public Use
  Company Number: FR-BIOGENIDEC-2008BI034414

PATIENT
  Age: 50 Year
  Sex: Female
  Weight: 67 kg

DRUGS (11)
  1. TYSABRI [Suspect]
     Indication: MULTIPLE SCLEROSIS
     Route: 042
     Dates: start: 20070809
  2. ANTIDEPRESSANTS [Concomitant]
  3. XANAX [Concomitant]
  4. XATRAL [Concomitant]
  5. LYRICA [Concomitant]
  6. MANTADIX [Concomitant]
  7. PROZAC [Concomitant]
  8. LIORESAL [Concomitant]
  9. TAHOR [Concomitant]
  10. NULYTELY [Concomitant]
  11. TRAMADOL HCL [Concomitant]

REACTIONS (1)
  - SUICIDE ATTEMPT [None]
